FAERS Safety Report 23308055 (Version 1)
Quarter: 2023Q4

REPORT INFORMATION
  Report Type: Spontaneous
  Country: DE (occurrence: DE)
  Receive Date: 20231218
  Receipt Date: 20231218
  Transmission Date: 20240110
  Serious: Yes (Hospitalization, Other)
  Sender: FDA-Public Use
  Company Number: DE-002147023-NVSC2023DE240306

PATIENT
  Age: 81 Year
  Sex: Female

DRUGS (1)
  1. BEOVU [Suspect]
     Active Substance: BROLUCIZUMAB-DBLL
     Indication: Macular degeneration
     Dosage: UNK, Q4W (SURGICAL DRUG ADMINISTRATION)
     Route: 031
     Dates: start: 20230920, end: 20231101

REACTIONS (4)
  - Retinal vasculitis [Not Recovered/Not Resolved]
  - Atrial fibrillation [Unknown]
  - Chorioretinitis [Unknown]
  - Retinal vein occlusion [Unknown]

NARRATIVE: CASE EVENT DATE: 20231101
